FAERS Safety Report 12073674 (Version 1)
Quarter: 2016Q1

REPORT INFORMATION
  Report Type: Report from Study
  Country: ES (occurrence: ES)
  Receive Date: 20160212
  Receipt Date: 20160212
  Transmission Date: 20160526
  Serious: Yes (Hospitalization)
  Sender: FDA-Public Use
  Company Number: ES-SA-2016SA023615

PATIENT
  Age: 68 Year
  Sex: Male
  Weight: 50.8 kg

DRUGS (5)
  1. IDARUBICIN [Suspect]
     Active Substance: IDARUBICIN
     Indication: ACUTE MYELOID LEUKAEMIA
     Route: 042
     Dates: start: 20151003
  2. G-CSF [Suspect]
     Active Substance: GRANULOCYTE COLONY-STIMULATING FACTOR NOS
     Indication: ACUTE MYELOID LEUKAEMIA
     Route: 042
     Dates: start: 20151003
  3. PLERIXAFOR [Suspect]
     Active Substance: PLERIXAFOR
     Indication: ACUTE MYELOID LEUKAEMIA
     Route: 042
     Dates: start: 20151003
  4. CYTARABINE. [Suspect]
     Active Substance: CYTARABINE
     Indication: ACUTE MYELOID LEUKAEMIA
     Route: 042
     Dates: start: 20151003
  5. FLUDARABINE PHOSPHATE. [Suspect]
     Active Substance: FLUDARABINE PHOSPHATE
     Indication: ACUTE MYELOID LEUKAEMIA
     Route: 042
     Dates: start: 20151003

REACTIONS (5)
  - Upper gastrointestinal haemorrhage [Recovered/Resolved]
  - Septic shock [Recovered/Resolved]
  - Fungal infection [Not Recovered/Not Resolved]
  - Fusarium infection [Not Recovered/Not Resolved]
  - Cystitis haemorrhagic [Recovered/Resolved]

NARRATIVE: CASE EVENT DATE: 20151009
